FAERS Safety Report 24086010 (Version 1)
Quarter: 2024Q3

REPORT INFORMATION
  Report Type: Spontaneous
  Country: FR (occurrence: None)
  Receive Date: 20240712
  Receipt Date: 20240712
  Transmission Date: 20241017
  Serious: Yes (Life-Threatening, Hospitalization, Other)
  Sender: ASTRAZENECA
  Company Number: 2024A159539

PATIENT
  Age: 74 Year
  Sex: Male
  Weight: 80 kg

DRUGS (1)
  1. DURVALUMAB [Suspect]
     Active Substance: DURVALUMAB
     Indication: Non-small cell lung cancer
     Dates: start: 20211021, end: 20220310

REACTIONS (10)
  - Portal vein thrombosis [Unknown]
  - Intestinal perforation [Unknown]
  - Colitis [Unknown]
  - Toxicity to various agents [Unknown]
  - Haematotoxicity [Unknown]
  - Thrombocytopenia [Unknown]
  - Neutropenia [Unknown]
  - Hepatocellular carcinoma [Unknown]
  - Infection [Unknown]
  - Asthenia [Unknown]
